FAERS Safety Report 7377859-1 (Version None)
Quarter: 2011Q1

REPORT INFORMATION
  Report Type: 
  Country: None (occurrence: None)
  Receive Date: 20110328
  Receipt Date: 20110317
  Transmission Date: 20110831
  Serious: Yes (Hospitalization)
  Sender: FDA-Public Use
  Company Number: DE-NOVOPROD-325167

PATIENT
  Sex: Female
  Weight: 112.7 kg

DRUGS (12)
  1. IDEG FLEXPEN [Suspect]
     Dosage: 64 UNK, UNK
     Route: 058
     Dates: start: 20101005
  2. NOVORAPID FLEXPEN [Suspect]
     Indication: TYPE 2 DIABETES MELLITUS
     Dosage: 47 IU, UNK
     Route: 058
     Dates: start: 20091009, end: 20101004
  3. METOPROLOL SUCCINATE [Concomitant]
     Indication: HYPERTENSION
     Dosage: 100 MG, QD
     Route: 048
     Dates: start: 20000101
  4. HYDROCHLOROTHIAZDE TAB [Concomitant]
     Indication: HYPERTENSION
     Dosage: 25 MG, QD
     Route: 048
     Dates: start: 20000101
  5. NOVORAPID FLEXPEN [Suspect]
     Dosage: 45 IU, QD
     Route: 058
     Dates: start: 20101005
  6. PANTOPRAZOL                        /01263202/ [Concomitant]
     Indication: PROPHYLAXIS
     Dosage: 40 MG, UNK
     Dates: start: 20080101
  7. ENALAPRIL MALEATE [Concomitant]
     Indication: HYPERTENSION
     Dosage: 40 MG, QD
     Route: 048
     Dates: start: 20000101
  8. ASPIRIN [Concomitant]
     Dosage: 100 MG, QD
     Route: 048
     Dates: start: 20000101
  9. CARMEN [Concomitant]
     Dosage: 20 MG, UNK
     Dates: start: 20060101
  10. IDEG FLEXPEN [Suspect]
     Indication: TYPE 2 DIABETES MELLITUS
     Dosage: 66 IU, QD
     Route: 058
     Dates: start: 20091009, end: 20101004
  11. EUTHYROX [Concomitant]
     Indication: HYPOTHYROIDISM
     Dosage: 75 MCG, UNK
     Dates: start: 19960101
  12. TRIAMTEREN [Concomitant]
     Indication: HYPERTENSION
     Dosage: 50 MG, QD
     Route: 048
     Dates: start: 20000101

REACTIONS (1)
  - ANAPHYLACTIC SHOCK [None]
